FAERS Safety Report 25897963 (Version 1)
Quarter: 2025Q4

REPORT INFORMATION
  Report Type: Spontaneous
  Country: EU (occurrence: EU)
  Receive Date: 20251008
  Receipt Date: 20251008
  Transmission Date: 20260118
  Serious: Yes (Other)
  Sender: NOVARTIS
  Company Number: EU-002147023-NVSC2025HU152086

PATIENT
  Sex: Male

DRUGS (6)
  1. LUTATHERA [Suspect]
     Active Substance: LUTETIUM OXODOTREOTIDE LU-177
     Indication: Small intestine neuroendocrine tumour
     Dosage: UNK, QID (4 TIMES)
     Route: 065
     Dates: start: 20240916, end: 20250311
  2. LUTATHERA [Suspect]
     Active Substance: LUTETIUM OXODOTREOTIDE LU-177
     Indication: Metastases to liver
  3. EVEROLIMUS [Suspect]
     Active Substance: EVEROLIMUS
     Indication: Small intestine neuroendocrine tumour
     Dosage: UNK
     Route: 065
     Dates: start: 20201104, end: 202409
  4. SANDOSTATIN [Suspect]
     Active Substance: OCTREOTIDE ACETATE
     Indication: Small intestine neuroendocrine tumour
     Dosage: UNK
     Route: 065
     Dates: start: 20201006, end: 202409
  5. SANDOSTATIN [Suspect]
     Active Substance: OCTREOTIDE ACETATE
     Indication: Metastases to liver
  6. SANDOSTATIN [Suspect]
     Active Substance: OCTREOTIDE ACETATE

REACTIONS (4)
  - Mesenteric abscess [Recovering/Resolving]
  - Neuroendocrine tumour [Recovering/Resolving]
  - Malignant neoplasm progression [Recovering/Resolving]
  - Hepatic lesion [Recovering/Resolving]

NARRATIVE: CASE EVENT DATE: 20240223
